FAERS Safety Report 8263586-5 (Version None)
Quarter: 2012Q2

REPORT INFORMATION
  Report Type: 
  Country: None (occurrence: None)
  Receive Date: 20120405
  Receipt Date: 20120328
  Transmission Date: 20120825
  Serious: Yes (Life-Threatening)
  Sender: FDA-Public Use
  Company Number: JP-CELGENEUS-087-50794-12040424

PATIENT
  Sex: Male
  Weight: 83 kg

DRUGS (8)
  1. PRIMPERAN TAB [Concomitant]
     Route: 065
     Dates: start: 20110809, end: 20110815
  2. GASMOTIN [Concomitant]
     Route: 065
     Dates: start: 20110706, end: 20110719
  3. VIDAZA [Suspect]
     Dosage: 75 MILLIGRAM/SQ. METER
     Route: 058
     Dates: start: 20110704, end: 20110708
  4. VIDAZA [Suspect]
     Dosage: 75 MILLIGRAM/SQ. METER
     Route: 058
     Dates: start: 20110809, end: 20110813
  5. PRIMPERAN TAB [Concomitant]
     Route: 065
     Dates: start: 20110531, end: 20110606
  6. VIDAZA [Suspect]
     Dosage: 75 MILLIGRAM/SQ. METER
     Route: 058
     Dates: start: 20110503, end: 20110630
  7. SUCRALFATE [Concomitant]
     Route: 065
     Dates: start: 20110530, end: 20110608
  8. MIYA BM [Concomitant]
     Route: 065
     Dates: start: 20110530

REACTIONS (3)
  - WHITE BLOOD CELL COUNT DECREASED [None]
  - PLATELET COUNT DECREASED [None]
  - NEUTROPHIL COUNT DECREASED [None]
